FAERS Safety Report 7692217 (Version 6)
Quarter: 2012Q4

REPORT INFORMATION
  Report Type: 
  Country: GB (occurrence: GB)
  Receive Date: 20101205
  Receipt Date: 20120911
  Transmission Date: 20130627
  Serious: Yes (Hospitalization)
  Sender: FDA-Public Use
  Company Number: GB-PFIZER INC-2010159094

PATIENT
  Age: 67 Year
  Sex: Female

DRUGS (1)
  1. CELECOXIB [Suspect]
     Indication: OSTEOARTHRITIS
     Dosage: 100 mg, 2x/day
     Route: 048
     Dates: start: 20081007, end: 20100415

REACTIONS (1)
  - Atrial fibrillation [Recovered/Resolved with Sequelae]
